FAERS Safety Report 5048203-X (Version None)
Quarter: 2006Q3

REPORT INFORMATION
  Report Type: 
  Country: None (occurrence: None)
  Receive Date: 20060711
  Receipt Date: 20050830
  Transmission Date: 20061208
  Serious: No
  Sender: FDA-Public Use
  Company Number: A572897A

PATIENT
  Age: 32 Year
  Sex: Female

DRUGS (1)
  1. IMITREX [Suspect]
     Dosage: 100MG UNKNOWN
     Route: 048

REACTIONS (1)
  - DRUG INEFFECTIVE [None]
